FAERS Safety Report 10417632 (Version 1)
Quarter: 2014Q3

REPORT INFORMATION
  Report Type: Spontaneous
  Country: US (occurrence: None)
  Receive Date: 20140828
  Receipt Date: 20140828
  Transmission Date: 20150326
  Serious: Yes (Hospitalization)
  Sender: FDA-Public Use
  Company Number: None

PATIENT
  Age: 64 Year
  Sex: Male
  Weight: 100 kg

DRUGS (5)
  1. INSULIN [Suspect]
     Active Substance: INSULIN NOS
     Indication: DIABETES MELLITUS
     Dosage: 122 UNITS TID SUBCUTANEOUS
     Route: 058
     Dates: start: 20140522, end: 20140719
  2. DILTIAZEM [Concomitant]
     Active Substance: DILTIAZEM
  3. DILTIAZEM [Concomitant]
     Active Substance: DILTIAZEM
  4. METOPROLOL [Concomitant]
     Active Substance: METOPROLOL
  5. ASPIRIN. [Concomitant]
     Active Substance: ASPIRIN

REACTIONS (6)
  - Hyperphagia [None]
  - Cardiovascular disorder [None]
  - Incorrect dose administered [None]
  - Weight increased [None]
  - Depressed level of consciousness [None]
  - Blood glucose decreased [None]

NARRATIVE: CASE EVENT DATE: 20140718
